FAERS Safety Report 25606025 (Version 1)
Quarter: 2025Q3

REPORT INFORMATION
  Report Type: Spontaneous
  Country: GB (occurrence: GB)
  Receive Date: 20250725
  Receipt Date: 20250725
  Transmission Date: 20251021
  Serious: Yes (Other)
  Sender: RANBAXY
  Company Number: GB-SUN PHARMACEUTICAL INDUSTRIES LTD-2025R1-518198

PATIENT
  Age: 55 Year
  Sex: Male

DRUGS (3)
  1. AMIODARONE [Suspect]
     Active Substance: AMIODARONE
     Indication: Cardiomyopathy
     Dosage: 200 MILLIGRAM, OD
     Route: 065
  2. BISOPROLOL [Suspect]
     Active Substance: BISOPROLOL
     Indication: Cardiomyopathy
     Dosage: 5 MILLIGRAM, OD
     Route: 065
  3. FLECAINIDE [Concomitant]
     Active Substance: FLECAINIDE
     Indication: Cardiomyopathy
     Dosage: 50 MILLIGRAM, BID
     Route: 065

REACTIONS (1)
  - Ventricular tachycardia [Recovered/Resolved]
